FAERS Safety Report 7235106-5 (Version None)
Quarter: 2011Q1

REPORT INFORMATION
  Report Type: 
  Country: None (occurrence: None)
  Receive Date: 20110120
  Receipt Date: 20110107
  Transmission Date: 20110831
  Serious: No
  Sender: FDA-Public Use
  Company Number: US-B.I. PHARMACEUTICALS,INC./RIDGEFIELD-2011-BP-01021BP

PATIENT
  Age: 48 Year
  Sex: Male

DRUGS (6)
  1. OXYGEN [Concomitant]
  2. GABAPENTIN [Concomitant]
  3. AMYTRIPTYLINE [Concomitant]
  4. ALBUTEROL [Concomitant]
  5. METOPROLOL [Concomitant]
  6. PRADAXA [Suspect]
     Indication: ATRIAL FIBRILLATION
     Dosage: 300 MG
     Route: 048
     Dates: start: 20110104

REACTIONS (4)
  - HEADACHE [None]
  - SUICIDAL IDEATION [None]
  - VISION BLURRED [None]
  - LOSS OF CONSCIOUSNESS [None]
